FAERS Safety Report 8855648 (Version 5)
Quarter: 2016Q1

REPORT INFORMATION
  Report Type: Report from Study
  Country: US (occurrence: US)
  Receive Date: 20121023
  Receipt Date: 20160211
  Transmission Date: 20160526
  Serious: Yes (Other)
  Sender: FDA-Public Use
  Company Number: US-AMGEN-USASP2012058746

PATIENT
  Age: 61 Year
  Sex: Female

DRUGS (2)
  1. ENBREL [Suspect]
     Active Substance: ETANERCEPT
     Dosage: UNK
     Route: 065
  2. ENBREL [Suspect]
     Active Substance: ETANERCEPT
     Indication: RHEUMATOID ARTHRITIS
     Dosage: 50 MG, WEEKLY
     Route: 058
     Dates: start: 2006

REACTIONS (24)
  - Disability [Unknown]
  - Autoimmune disorder [Unknown]
  - Musculoskeletal stiffness [Not Recovered/Not Resolved]
  - Hypersensitivity [Unknown]
  - Drug dose omission [Unknown]
  - Discomfort [Not Recovered/Not Resolved]
  - Abdominal pain upper [Unknown]
  - Abasia [Unknown]
  - Nasal congestion [Unknown]
  - Incorrect dose administered [Unknown]
  - Haematuria [Unknown]
  - Ovarian cyst [Unknown]
  - Urticaria [Unknown]
  - Dizziness [Not Recovered/Not Resolved]
  - Injection site pain [Recovering/Resolving]
  - Joint swelling [Not Recovered/Not Resolved]
  - Pruritus generalised [Not Recovered/Not Resolved]
  - Injection site pruritus [Unknown]
  - Fatigue [Unknown]
  - Nephrolithiasis [Unknown]
  - Rheumatoid arthritis [Not Recovered/Not Resolved]
  - Gastrooesophageal reflux disease [Not Recovered/Not Resolved]
  - Herpes zoster [Unknown]
  - Finger deformity [Not Recovered/Not Resolved]

NARRATIVE: CASE EVENT DATE: 201201
